FAERS Safety Report 7744261-X (Version None)
Quarter: 2011Q3

REPORT INFORMATION
  Report Type: 
  Country: None (occurrence: None)
  Receive Date: 20110912
  Receipt Date: 20110902
  Transmission Date: 20111222
  Serious: Yes (Hospitalization, Other)
  Sender: FDA-Public Use
  Company Number: PHHY2011US78755

PATIENT
  Age: 42 Year
  Sex: Female

DRUGS (6)
  1. QUETIAPINE [Interacting]
     Dosage: 100 MG, UNK
  2. DULOXETIME HYDROCHLORIDE [Interacting]
     Dosage: 20 MG, UNK
  3. DULOXETIME HYDROCHLORIDE [Interacting]
     Dosage: 60 MG, UNK
  4. MIRTAZAPINE [Suspect]
  5. KETAMINE HCL [Interacting]
     Indication: COMPLEX REGIONAL PAIN SYNDROME
     Dosage: 10 TO 20 MG/H, ON DAY 1
     Route: 042
  6. QUETIAPINE [Interacting]
     Dosage: 200 MG, UNK

REACTIONS (15)
  - IRRITABILITY [None]
  - SUICIDAL IDEATION [None]
  - ABNORMAL BEHAVIOUR [None]
  - DRUG INTERACTION [None]
  - HYPOMANIA [None]
  - INSOMNIA [None]
  - AFFECT LABILITY [None]
  - FLIGHT OF IDEAS [None]
  - PARANOIA [None]
  - MANIA [None]
  - MENTAL STATUS CHANGES [None]
  - TACHYPHRENIA [None]
  - PRESSURE OF SPEECH [None]
  - EUPHORIC MOOD [None]
  - AGITATION [None]
